FAERS Safety Report 6941250-X (Version None)
Quarter: 2010Q3

REPORT INFORMATION
  Report Type: 
  Country: None (occurrence: None)
  Receive Date: 20100825
  Receipt Date: 20100720
  Transmission Date: 20110219
  Serious: No
  Sender: FDA-Public Use
  Company Number: US-BRISTOL-MYERS SQUIBB COMPANY-15200314

PATIENT
  Age: 77 Year
  Sex: Male

DRUGS (7)
  1. ONGLYZA [Suspect]
     Dosage: 5 MG DAILY FOR 6 DAYS THEN INTERRUPTED.RESTARTED 5 MG DAILY FOR 6DAYS THEN DISCONTINUED
     Dates: start: 20100401, end: 20100701
  2. METFORMIN HCL [Concomitant]
  3. GLYBURIDE [Concomitant]
  4. FISH OIL [Concomitant]
  5. MULTIVITAMIN [Concomitant]
  6. PLAVIX [Concomitant]
  7. CHOLESTEROL MEDICATION [Concomitant]

REACTIONS (6)
  - BONE PAIN [None]
  - DYSPNOEA [None]
  - FATIGUE [None]
  - HEADACHE [None]
  - MYALGIA [None]
  - ORAL PAIN [None]
